FAERS Safety Report 20339017 (Version 3)
Quarter: 2022Q2

REPORT INFORMATION
  Report Type: Report from Study
  Country: JP (occurrence: JP)
  Receive Date: 20220117
  Receipt Date: 20220429
  Transmission Date: 20220721
  Serious: Yes (Hospitalization, Other)
  Sender: FDA-Public Use
  Company Number: JP-ABBVIE-21K-087-4176386-00

PATIENT
  Sex: Male

DRUGS (2)
  1. CARBIDOPA\LEVODOPA [Suspect]
     Active Substance: CARBIDOPA\LEVODOPA
     Indication: Parkinson^s disease
     Route: 050
     Dates: start: 20211028
  2. CARBIDOPA\LEVODOPA [Suspect]
     Active Substance: CARBIDOPA\LEVODOPA
     Dosage: MD: 15 ML?CD: 4.0 ML/HR
     Route: 050

REACTIONS (10)
  - Hospitalisation [Recovered/Resolved]
  - Hospitalisation [Unknown]
  - Medication error [Unknown]
  - Anaemia [Unknown]
  - Stoma site discharge [Not Recovered/Not Resolved]
  - Abdominal discomfort [Unknown]
  - Orthostatic hypotension [Unknown]
  - Stoma site pain [Unknown]
  - Somnolence [Not Recovered/Not Resolved]
  - Blister [Unknown]

NARRATIVE: CASE EVENT DATE: 20210101
